FAERS Safety Report 6342110-8 (Version None)
Quarter: 2009Q3

REPORT INFORMATION
  Report Type: 
  Country: None (occurrence: None)
  Receive Date: 20090903
  Receipt Date: 20090903
  Transmission Date: 20100115
  Serious: No
  Sender: FDA-Public Use
  Company Number: None

PATIENT
  Age: 23 Year
  Sex: Female
  Weight: 81.6475 kg

DRUGS (1)
  1. CHANTIX [Suspect]
     Indication: SMOKING CESSATION THERAPY
     Dosage: DAILY PO
     Route: 048
     Dates: start: 20090501, end: 20090528

REACTIONS (4)
  - BLINDNESS UNILATERAL [None]
  - IRRITABILITY [None]
  - MIGRAINE WITH AURA [None]
  - PARAESTHESIA [None]
